FAERS Safety Report 8097043-6 (Version None)
Quarter: 2012Q1

REPORT INFORMATION
  Report Type: 
  Country: None (occurrence: None)
  Receive Date: 20120131
  Receipt Date: 20120119
  Transmission Date: 20120608
  Serious: Yes (Other)
  Sender: FDA-Public Use
  Company Number: FR-UCBSA-041764

PATIENT
  Age: 65 Year
  Sex: Male

DRUGS (1)
  1. CIMZIA [Suspect]
     Indication: PSORIATIC ARTHROPATHY
     Route: 058
     Dates: start: 20110501, end: 20110801

REACTIONS (2)
  - GOUT [None]
  - PSORIASIS [None]
